FAERS Safety Report 5288674-7 (Version None)
Quarter: 2007Q2

REPORT INFORMATION
  Report Type: 
  Country: None (occurrence: None)
  Receive Date: 20070405
  Receipt Date: 20070326
  Transmission Date: 20071010
  Serious: Yes (Life-Threatening, Hospitalization, Other)
  Sender: FDA-Public Use
  Company Number: US-SHR-US-2007-010972

PATIENT
  Age: 73 Year
  Sex: Male

DRUGS (2)
  1. ULTRAVIST PHARMACY BULK PACKAGE (300 MG/ML) [Suspect]
     Indication: COMPUTERISED TOMOGRAM ABDOMEN
     Dosage: 150 ML, 1 DOSE
     Route: 042
     Dates: start: 20070323, end: 20070323
  2. CONTRAST MEDIA [Concomitant]
     Route: 048
     Dates: start: 20070323, end: 20070323

REACTIONS (7)
  - AGITATION [None]
  - ANAPHYLACTIC REACTION [None]
  - CARDIAC ARREST [None]
  - FOAMING AT MOUTH [None]
  - HYPERTENSIVE CRISIS [None]
  - PULMONARY OEDEMA [None]
  - STRIDOR [None]
